FAERS Safety Report 18075193 (Version 1)
Quarter: 2020Q3

REPORT INFORMATION
  Report Type: Spontaneous
  Country: US (occurrence: US)
  Receive Date: 20200727
  Receipt Date: 20200727
  Transmission Date: 20201103
  Serious: No
  Sender: FDA-Public Use
  Company Number: US-ABBVIE-19K-163-3187852-00

PATIENT
  Sex: Female

DRUGS (1)
  1. SYNTHROID [Suspect]
     Active Substance: LEVOTHYROXINE SODIUM
     Indication: CONGENITAL HYPOTHYROIDISM
     Dosage: 1/2 PILL 5 DAYS PER WEEK
     Route: 048
     Dates: start: 2015

REACTIONS (3)
  - Product coating issue [Unknown]
  - Headache [Recovered/Resolved]
  - Product administration error [Unknown]
